FAERS Safety Report 4312635-5 (Version None)
Quarter: 2004Q1

REPORT INFORMATION
  Report Type: 
  Country: None (occurrence: None)
  Receive Date: 20040305
  Receipt Date: 20040301
  Transmission Date: 20041129
  Serious: Yes (Life-Threatening)
  Sender: FDA-Public Use
  Company Number: WAES 0403ITA00001

PATIENT
  Age: 92 Year
  Sex: Female

DRUGS (7)
  1. ALLOPURINOL [Concomitant]
     Route: 048
  2. AMLODIPINE BESYLATE [Concomitant]
     Route: 048
  3. DIGOXIN [Concomitant]
     Route: 048
  4. VASOTEC [Concomitant]
     Route: 048
  5. FERROUS SULFATE [Concomitant]
  6. FUROSEMIDE [Concomitant]
  7. VIOXX [Suspect]
     Indication: OSTEOARTHRITIS
     Route: 048
     Dates: start: 20040205, end: 20040213

REACTIONS (3)
  - HAEMOGLOBIN DECREASED [None]
  - MELAENA [None]
  - RED BLOOD CELL COUNT DECREASED [None]
